FAERS Safety Report 19855255 (Version 1)
Quarter: 2021Q3

REPORT INFORMATION
  Report Type: Spontaneous
  Country: US (occurrence: US)
  Receive Date: 20210919
  Receipt Date: 20210919
  Transmission Date: 20211014
  Serious: Yes (Other)
  Sender: FDA-Public Use
  Company Number: None

PATIENT
  Age: 68 Year
  Sex: Male
  Weight: 135 kg

DRUGS (2)
  1. VALSARTAN TABLETS, USP 320 MG CADIS  T A NDC 59746?363?90 [Suspect]
     Active Substance: VALSARTAN
     Indication: HYPERTENSION
     Dosage: ?          QUANTITY:1 TABLET(S);?
     Route: 048
  2. VALSARTAN TABLETS, USP 320 MG CADIS  T A NDC 59746?363?90 [Suspect]
     Active Substance: VALSARTAN
     Indication: CHRONIC KIDNEY DISEASE
     Dosage: ?          QUANTITY:1 TABLET(S);?
     Route: 048

REACTIONS (2)
  - Blood pressure increased [None]
  - Product substitution issue [None]

NARRATIVE: CASE EVENT DATE: 20210915
